FAERS Safety Report 11662255 (Version 1)
Quarter: 2015Q4

REPORT INFORMATION
  Report Type: Spontaneous
  Country: AU (occurrence: AU)
  Receive Date: 20151027
  Receipt Date: 20151027
  Transmission Date: 20160304
  Serious: No
  Sender: FDA-Public Use
  Company Number: AU-009507513-1510AUS010272

PATIENT

DRUGS (1)
  1. NOVASONE [Suspect]
     Active Substance: MOMETASONE FUROATE
     Route: 047

REACTIONS (1)
  - Incorrect route of drug administration [Unknown]
